FAERS Safety Report 7346840-0 (Version None)
Quarter: 2011Q1

REPORT INFORMATION
  Report Type: 
  Country: None (occurrence: None)
  Receive Date: 20110311
  Receipt Date: 20110307
  Transmission Date: 20110831
  Serious: Yes (Other)
  Sender: FDA-Public Use
  Company Number: US-AMGEN-USACT2011012669

PATIENT
  Age: 52 Year
  Sex: Male
  Weight: 84.9 kg

DRUGS (13)
  1. MEDROL [Concomitant]
     Dosage: 1.2 MG/KG, UNK
     Dates: start: 20110216
  2. IMODIUM [Concomitant]
  3. BUSULFAN [Concomitant]
  4. FLUDARA [Concomitant]
  5. MEDROL [Concomitant]
     Dosage: 2 MG/KG, UNK
     Dates: start: 20110207
  6. TACROLIMUS [Concomitant]
  7. CAMPATH [Concomitant]
     Dosage: 15 MG, UNK
     Dates: start: 20110212
  8. MYCOPHENOLATE [Concomitant]
     Dosage: UNK
     Dates: end: 20110217
  9. BUDESONIDE [Concomitant]
     Dosage: 3 MG, TID
     Dates: start: 20110221
  10. ACID CITRATE DEXTROSE SOLUTION (FORMULA) A [Concomitant]
  11. CALC CARB AROM [Concomitant]
  12. ETANERCEPT [Suspect]
     Indication: GRAFT VERSUS HOST DISEASE
     Dosage: UNK
     Dates: start: 20110125
  13. CAMPATH [Concomitant]
     Dosage: 30 MG, UNK
     Dates: start: 20110215

REACTIONS (1)
  - SYNCOPE [None]
